FAERS Safety Report 5269147-4 (Version None)
Quarter: 2007Q1

REPORT INFORMATION
  Report Type: 
  Country: None (occurrence: None)
  Receive Date: 20070319
  Receipt Date: 20070316
  Transmission Date: 20070707
  Serious: Yes (Death)
  Sender: FDA-Public Use
  Company Number: US-BOEHRINGER INGELHEIM PHARMACEUTICALS, INC.-2007-BP-03639BP

PATIENT
  Sex: Male

DRUGS (1)
  1. MICARDIS [Suspect]
     Route: 048
     Dates: start: 20060713, end: 20060805

REACTIONS (1)
  - DEATH [None]
